FAERS Safety Report 5342367-6 (Version None)
Quarter: 2007Q2

REPORT INFORMATION
  Report Type: 
  Country: None (occurrence: None)
  Receive Date: 20070416
  Receipt Date: 20070109
  Transmission Date: 20071010
  Serious: No
  Sender: FDA-Public Use
  Company Number: 2007SP000119

PATIENT
  Age: 61 Year
  Sex: Female

DRUGS (9)
  1. LUNESTA [Suspect]
     Dosage: 3 MG; ORAL
     Route: 048
     Dates: start: 20060601, end: 20060601
  2. LUNESTA [Suspect]
     Dosage: 3 MG; ORAL
     Route: 048
     Dates: start: 20070101
  3. DURAGESIC-100 [Concomitant]
  4. KLONOPIN [Concomitant]
  5. CYMBALTA [Concomitant]
  6. GEODON [Concomitant]
  7. SEROQUEL [Concomitant]
  8. TRAZODONE HCL [Concomitant]
  9. PROVIGIL [Concomitant]

REACTIONS (3)
  - FATIGUE [None]
  - MIDDLE INSOMNIA [None]
  - SOMNOLENCE [None]
